FAERS Safety Report 4424786-5 (Version None)
Quarter: 2004Q3

REPORT INFORMATION
  Report Type: 
  Country: None (occurrence: None)
  Receive Date: 20040806
  Receipt Date: 20040726
  Transmission Date: 20050211
  Serious: Yes (Death)
  Sender: FDA-Public Use
  Company Number: 04H-151-0268253-00

PATIENT
  Age: 61 Year

DRUGS (5)
  1. HEPARIN SODIUM [Suspect]
     Indication: ANTICOAGULANT THERAPY
     Dosage: SUBCUTANEOUS
     Route: 058
  2. CALCITRIOL [Concomitant]
  3. CALCIUM CARBONATE [Concomitant]
  4. NIFEDIPINE [Concomitant]
  5. MORPHINE [Concomitant]

REACTIONS (11)
  - ABDOMINAL PAIN [None]
  - BACTERIAL INFECTION [None]
  - BIOPSY SKIN ABNORMAL [None]
  - ERYSIPELAS [None]
  - HEPARIN-INDUCED THROMBOCYTOPENIA [None]
  - PATHOGEN RESISTANCE [None]
  - SEPTAL PANNICULITIS [None]
  - SEPTIC SHOCK [None]
  - SKIN LESION [None]
  - SKIN NECROSIS [None]
  - SYSTEMIC INFLAMMATORY RESPONSE SYNDROME [None]
